FAERS Safety Report 8044505-3 (Version None)
Quarter: 2012Q1

REPORT INFORMATION
  Report Type: 
  Country: None (occurrence: None)
  Receive Date: 20120113
  Receipt Date: 20120109
  Transmission Date: 20120608
  Serious: Yes (Hospitalization, Other)
  Sender: FDA-Public Use
  Company Number: CA-JNJFOC-20110606486

PATIENT
  Sex: Male
  Weight: 104.5 kg

DRUGS (10)
  1. SIMPONI [Suspect]
     Indication: PRODUCT USED FOR UNKNOWN INDICATION
     Route: 058
  2. REMICADE [Suspect]
     Indication: RHEUMATOID ARTHRITIS
     Route: 042
     Dates: start: 20110315
  3. FOLIC ACID [Concomitant]
     Route: 065
  4. REMICADE [Suspect]
     Route: 042
     Dates: start: 20110515
  5. PREVACID [Concomitant]
     Route: 065
  6. REMICADE [Suspect]
     Route: 042
     Dates: start: 20110426
  7. REMICADE [Suspect]
     Route: 042
     Dates: start: 20110721
  8. VOLTAREN [Concomitant]
     Route: 065
  9. SYNTHROID [Concomitant]
     Route: 065
  10. PERCOCET [Concomitant]

REACTIONS (2)
  - KNEE ARTHROPLASTY [None]
  - DRUG EFFECT DECREASED [None]
